FAERS Safety Report 9115205 (Version 1)
Quarter: 2013Q1

REPORT INFORMATION
  Report Type: Spontaneous
  Country: US (occurrence: US)
  Receive Date: 20130225
  Receipt Date: 20130225
  Transmission Date: 20140127
  Serious: Yes (Other)
  Sender: FDA-Public Use
  Company Number: US-PFIZER INC-2006056874

PATIENT
  Age: 47 Year
  Sex: Female
  Weight: 55.3 kg

DRUGS (25)
  1. IBUPROFEN [Suspect]
     Indication: PAIN
     Dosage: UNK
     Route: 065
  2. IBUPROFEN [Interacting]
     Indication: SYSTEMIC LUPUS ERYTHEMATOSUS
  3. IBUPROFEN [Interacting]
     Indication: HEADACHE
  4. DETROL LA [Interacting]
     Indication: URINARY INCONTINENCE
     Dosage: 4 MG, 1X/DAY
     Route: 065
     Dates: end: 200604
  5. DETROL LA [Interacting]
     Indication: MUSCLE SPASMS
  6. DETROL LA [Interacting]
     Indication: POLLAKIURIA
  7. PREMARIN [Interacting]
     Indication: HORMONE REPLACEMENT THERAPY
     Dosage: UNK
     Route: 065
  8. PREDNISONE [Interacting]
     Indication: SYSTEMIC LUPUS ERYTHEMATOSUS
     Dosage: UNK
     Route: 065
  9. SYNTHROID [Interacting]
     Indication: THYROID DISORDER
     Dosage: UNK
     Route: 065
  10. MELATONIN [Interacting]
     Indication: SLEEP DISORDER
     Dosage: UNK
     Route: 065
  11. ALLEGRA [Concomitant]
     Indication: HYPERSENSITIVITY
     Route: 065
  12. DEPAKOTE - SLOW RELEASE [Concomitant]
     Indication: CONVULSION
     Dosage: UNK
     Route: 065
  13. DEPAKOTE - SLOW RELEASE [Concomitant]
     Indication: MIGRAINE
  14. NEXIUM [Concomitant]
     Indication: GASTROOESOPHAGEAL REFLUX DISEASE
     Dosage: UNK
     Route: 065
  15. NEXIUM [Concomitant]
     Indication: GASTRITIS
  16. FOSAMAX [Concomitant]
     Indication: BONE DISORDER
     Dosage: UNK
     Route: 065
  17. TYLENOL [Concomitant]
     Indication: PAIN
     Dosage: UNK
     Route: 065
  18. TYLENOL [Concomitant]
     Indication: SYSTEMIC LUPUS ERYTHEMATOSUS
  19. TYLENOL [Concomitant]
     Indication: HEADACHE
  20. PROVIGIL [Concomitant]
     Indication: NARCOLEPSY
     Dosage: UNK
     Route: 065
  21. ADVAIR [Concomitant]
     Indication: ASTHMA
     Dosage: UNK
     Route: 065
  22. SINGULAIR [Concomitant]
     Indication: ASTHMA
     Route: 065
  23. MAXALT/RIZATRIPTAN BENZOATE [Concomitant]
     Indication: ASTHMA
     Dosage: UNK
     Route: 065
  24. PROVENTIL INHALER [Concomitant]
     Indication: ASTHMA
     Dosage: UNK
     Route: 065
  25. PLAQUENIL [Concomitant]
     Indication: SYSTEMIC LUPUS ERYTHEMATOSUS
     Dosage: UNK
     Route: 065

REACTIONS (14)
  - Central nervous system lesion [Unknown]
  - Neuropathy peripheral [Unknown]
  - Multiple sclerosis [Unknown]
  - Neuritis [Unknown]
  - Vomiting [Unknown]
  - Pain [Not Recovered/Not Resolved]
  - Muscle spasms [Not Recovered/Not Resolved]
  - Joint injury [Recovering/Resolving]
  - Fall [Recovered/Resolved with Sequelae]
  - Dizziness [Unknown]
  - Bedridden [Unknown]
  - Cystitis [Not Recovered/Not Resolved]
  - Micturition urgency [Not Recovered/Not Resolved]
  - Drug interaction [Unknown]
